FAERS Safety Report 6295934 (Version 23)
Quarter: 2014Q1

REPORT INFORMATION
  Report Type: Spontaneous
  Country: US (occurrence: US)
  Receive Date: 20070425
  Receipt Date: 20140101
  Transmission Date: 20141002
  Serious: Yes (Other)
  Sender: FDA-Public Use
  Company Number: PHEH2007US05476

PATIENT
  Age: 52 Year
  Sex: Female

DRUGS (16)
  1. AREDIA [Suspect]
     Indication: METASTASES TO BONE
     Route: 042
  2. ZOMETA [Suspect]
     Indication: METASTASES TO BONE
     Route: 042
  3. FEMARA [Concomitant]
     Dosage: 2.5 MG, UNK
     Dates: start: 200511
  4. LIPITOR [Concomitant]
     Dosage: 20 MG, UNK
     Dates: start: 200510
  5. NIFEDIAC CC [Concomitant]
     Dosage: 60 MG, UNK
     Dates: start: 200511
  6. PAROXETINE HYDROCHLORIDE [Concomitant]
     Dosage: 20 MG, UNK
     Dates: start: 200511
  7. BISOPROLOL FUMARATE W/HYDROCHLOROTHIAZIDE [Concomitant]
     Dosage: UNK UKN, UNK
     Dates: start: 200511
  8. GABAPENTIN [Concomitant]
     Dosage: 300 MG, UNK
     Dates: start: 200605
  9. NIFEDICAL [Concomitant]
     Dosage: 60 MG, UNK
     Dates: start: 200701
  10. PENICILLIN VK [Concomitant]
     Dosage: 500 MG, UNK
     Dates: start: 200703
  11. METRONIDAZOLE [Concomitant]
     Dosage: 500 MG, UNK
     Dates: start: 200703
  12. HYDROCODONE W/ACETAMINOPHEN [Concomitant]
     Dosage: UNK UKN, UNK
     Dates: start: 200703
  13. CLARITIN [Concomitant]
  14. HYDROCHLOROTHIAZIDE [Concomitant]
  15. PROCARDIA [Concomitant]
     Indication: HYPERTENSION
  16. ZOCOR [Concomitant]
     Indication: HYPERLIPIDAEMIA

REACTIONS (58)
  - Osteonecrosis of jaw [Unknown]
  - Pain [Unknown]
  - Anxiety [Unknown]
  - Injury [Unknown]
  - Exostosis [Unknown]
  - Swelling face [Recovered/Resolved with Sequelae]
  - Soft tissue disorder [Unknown]
  - Metastatic neoplasm [Not Recovered/Not Resolved]
  - Fibrous histiocytoma [Unknown]
  - Diastolic dysfunction [Unknown]
  - Osteoarthritis [Unknown]
  - Ventricular hypertrophy [Unknown]
  - Renal cyst [Unknown]
  - Vaginal infection [Unknown]
  - Dysuria [Unknown]
  - Neuropathy peripheral [Unknown]
  - Tendon disorder [Unknown]
  - Xanthoma [Unknown]
  - Lentigo [Unknown]
  - Hyperaesthesia [Unknown]
  - Pyrexia [Unknown]
  - Exposed bone in jaw [Unknown]
  - Bone pain [Unknown]
  - Haemorrhoids [Unknown]
  - Diverticulum intestinal haemorrhagic [Unknown]
  - Hepatic steatosis [Unknown]
  - Retinal artery occlusion [Unknown]
  - Cataract nuclear [Unknown]
  - Diabetic neuropathy [Unknown]
  - Retinal vein occlusion [Unknown]
  - Breast calcifications [Unknown]
  - Osteosclerosis [Unknown]
  - Osteolysis [Unknown]
  - Hypermetropia [Unknown]
  - Astigmatism [Unknown]
  - Presbyopia [Unknown]
  - Pinguecula [Unknown]
  - Nail discolouration [Unknown]
  - Onychoclasis [Unknown]
  - Impaired healing [Unknown]
  - Localised infection [Unknown]
  - Local swelling [Unknown]
  - Pulmonary mass [Unknown]
  - Pleural fibrosis [Unknown]
  - Fatigue [Unknown]
  - Insomnia [Unknown]
  - Sleep apnoea syndrome [Unknown]
  - Breast cyst [Unknown]
  - Lung disorder [Unknown]
  - Nodule [Unknown]
  - Onychomycosis [Unknown]
  - Gout [Unknown]
  - Tinnitus [Unknown]
  - Ear pain [Unknown]
  - Osteomyelitis [Unknown]
  - Periostitis [Unknown]
  - Purulent discharge [Unknown]
  - Asthenia [Unknown]
